FAERS Safety Report 4863008-8 (Version None)
Quarter: 2005Q4

REPORT INFORMATION
  Report Type: 
  Country: None (occurrence: None)
  Receive Date: 20051221
  Receipt Date: 20051214
  Transmission Date: 20060501
  Serious: Yes (Hospitalization)
  Sender: FDA-Public Use
  Company Number: AU-MERCK-0512AUS00301

PATIENT
  Age: 84 Year
  Sex: Female

DRUGS (1)
  1. FOSAMAX [Suspect]
     Indication: OSTEOPOROSIS
     Route: 048
     Dates: start: 20030101, end: 20051101

REACTIONS (5)
  - BACK PAIN [None]
  - COLLAPSE OF LUNG [None]
  - LUNG NEOPLASM MALIGNANT [None]
  - MUSCULOSKELETAL CHEST PAIN [None]
  - THERAPEUTIC RESPONSE UNEXPECTED [None]
